FAERS Safety Report 18777289 (Version 1)
Quarter: 2021Q1

REPORT INFORMATION
  Report Type: Spontaneous
  Country: CA (occurrence: CA)
  Receive Date: 20210122
  Receipt Date: 20210122
  Transmission Date: 20210419
  Serious: Yes (Hospitalization, Other)
  Sender: FDA-Public Use
  Company Number: CA-PURDUE-USA-2020-0199036

PATIENT
  Sex: Female

DRUGS (2)
  1. OXYNEO [Suspect]
     Active Substance: OXYCODONE
     Indication: PRODUCT USED FOR UNKNOWN INDICATION
     Dosage: UNKNOWN
     Route: 048
  2. OXYCONTIN [Suspect]
     Active Substance: OXYCODONE HYDROCHLORIDE
     Indication: FIBROMYALGIA
     Dosage: UNK
     Route: 048

REACTIONS (18)
  - Appendicitis [Unknown]
  - Constipation [Unknown]
  - Hernia [Unknown]
  - Unevaluable event [Unknown]
  - Diarrhoea [Unknown]
  - Dizziness [Unknown]
  - Fatigue [Unknown]
  - Nausea [Unknown]
  - Drug dependence [Unknown]
  - Volvulus [Unknown]
  - Postoperative adhesion [Unknown]
  - Illness [Unknown]
  - Urinary tract infection [Unknown]
  - Pain [Unknown]
  - Dyspepsia [Unknown]
  - Flatulence [Unknown]
  - Internal haemorrhage [Unknown]
  - Intestinal obstruction [Unknown]

NARRATIVE: CASE EVENT DATE: 2015
